FAERS Safety Report 16465380 (Version 8)
Quarter: 2023Q4

REPORT INFORMATION
  Report Type: Spontaneous
  Country: US (occurrence: None)
  Receive Date: 20190621
  Receipt Date: 20231019
  Transmission Date: 20240109
  Serious: Yes (Other)
  Sender: FDA-Public Use
  Company Number: 2018SF65231

PATIENT
  Age: 61 Year
  Sex: Female

DRUGS (96)
  1. PRILOSEC [Suspect]
     Active Substance: OMEPRAZOLE MAGNESIUM
     Indication: Gastrooesophageal reflux disease
     Dosage: FOR VARIOUS DATES AND YEARS
     Route: 048
  2. PRILOSEC [Suspect]
     Active Substance: OMEPRAZOLE MAGNESIUM
     Indication: Gastrooesophageal reflux disease
     Route: 048
  3. PRILOSEC [Suspect]
     Active Substance: OMEPRAZOLE MAGNESIUM
     Indication: Gastrooesophageal reflux disease
     Dosage: GENERIC
     Route: 065
  4. PRILOSEC [Suspect]
     Active Substance: OMEPRAZOLE MAGNESIUM
     Indication: Gastrooesophageal reflux disease
     Dosage: GENERIC
     Dates: start: 2008
  5. PRILOSEC [Suspect]
     Active Substance: OMEPRAZOLE MAGNESIUM
     Indication: Gastrooesophageal reflux disease
     Dosage: GENERIC
     Dates: start: 20110216
  6. PREVACID [Suspect]
     Active Substance: LANSOPRAZOLE
     Indication: Gastrooesophageal reflux disease
     Dosage: FOR VARIOUS DATES AND YEARS
     Route: 065
  7. PREVACID [Suspect]
     Active Substance: LANSOPRAZOLE
     Indication: Gastrooesophageal reflux disease
     Route: 065
  8. PREVACID [Suspect]
     Active Substance: LANSOPRAZOLE
     Indication: Gastrooesophageal reflux disease
     Route: 065
     Dates: start: 2008, end: 2016
  9. PREVACID [Suspect]
     Active Substance: LANSOPRAZOLE
     Indication: Gastrooesophageal reflux disease
     Route: 065
     Dates: start: 2016
  10. PREVACID [Suspect]
     Active Substance: LANSOPRAZOLE
     Indication: Gastrooesophageal reflux disease
     Route: 065
     Dates: start: 2008, end: 2016
  11. PREVACID [Suspect]
     Active Substance: LANSOPRAZOLE
     Indication: Gastrooesophageal reflux disease
     Route: 065
     Dates: start: 2016
  12. PREVACID [Suspect]
     Active Substance: LANSOPRAZOLE
     Indication: Gastrooesophageal reflux disease
     Route: 065
     Dates: start: 20110216
  13. PREVACID [Suspect]
     Active Substance: LANSOPRAZOLE
     Indication: Gastrooesophageal reflux disease
     Route: 065
     Dates: start: 2008, end: 2016
  14. PREVACID [Suspect]
     Active Substance: LANSOPRAZOLE
     Indication: Gastrooesophageal reflux disease
     Route: 065
     Dates: start: 2008, end: 2016
  15. PREVACID [Suspect]
     Active Substance: LANSOPRAZOLE
     Indication: Gastrooesophageal reflux disease
     Dosage: GENERIC
     Route: 065
     Dates: start: 2016
  16. PANTOPRAZOLE [Suspect]
     Active Substance: PANTOPRAZOLE
     Indication: Gastrooesophageal reflux disease
     Dosage: GENERIC
     Route: 065
     Dates: start: 20110406
  17. PANTOPRAZOLE [Suspect]
     Active Substance: PANTOPRAZOLE
     Indication: Gastrooesophageal reflux disease
     Dosage: GENERIC
     Route: 065
     Dates: start: 20110520
  18. PANTOPRAZOLE [Suspect]
     Active Substance: PANTOPRAZOLE
     Indication: Gastrooesophageal reflux disease
     Dosage: GENERIC
     Route: 065
     Dates: start: 20110406, end: 201106
  19. PANTOPRAZOLE [Suspect]
     Active Substance: PANTOPRAZOLE
     Indication: Gastrooesophageal reflux disease
     Route: 065
     Dates: start: 20190707
  20. PANTOPRAZOLE [Suspect]
     Active Substance: PANTOPRAZOLE
     Indication: Gastrooesophageal reflux disease
     Route: 065
     Dates: start: 20110406
  21. LOSARTAN [Concomitant]
     Active Substance: LOSARTAN
  22. NORCO [Concomitant]
     Active Substance: ACETAMINOPHEN\HYDROCODONE BITARTRATE
  23. FOLIC ACID [Concomitant]
     Active Substance: FOLIC ACID
  24. NORVASC [Concomitant]
     Active Substance: AMLODIPINE BESYLATE
  25. ROCALTROL [Concomitant]
     Active Substance: CALCITRIOL
  26. LIOTHYRONINE SODIUM [Concomitant]
     Active Substance: LIOTHYRONINE SODIUM
  27. ASPIRIN [Concomitant]
     Active Substance: ASPIRIN
     Indication: Anticoagulant therapy
     Dosage: TAKEN FOR 5 MONTHS
  28. COREG [Concomitant]
     Active Substance: CARVEDILOL
  29. CRESTOR [Concomitant]
     Active Substance: ROSUVASTATIN CALCIUM
     Indication: Hypertension
     Dates: start: 2014, end: 2016
  30. CRESTOR [Concomitant]
     Active Substance: ROSUVASTATIN CALCIUM
     Indication: Hypertension
     Route: 048
  31. EFFEXOR [Concomitant]
     Active Substance: VENLAFAXINE HYDROCHLORIDE
  32. VITAMIN D [Concomitant]
     Active Substance: VITAMIN D NOS
     Indication: Calcium deficiency
     Dates: start: 2013
  33. GLIMEPIRIDE [Concomitant]
     Active Substance: GLIMEPIRIDE
  34. ALLOPURINOL [Concomitant]
     Active Substance: ALLOPURINOL
  35. TRICOR [Concomitant]
     Active Substance: FENOFIBRATE
  36. PLAVIX [Concomitant]
     Active Substance: CLOPIDOGREL BISULFATE
     Indication: Cardiac disorder
     Dates: start: 20110406, end: 2019
  37. ENTOCORT [Concomitant]
     Active Substance: BUDESONIDE
  38. LOMOTIL [Concomitant]
     Active Substance: ATROPINE SULFATE\DIPHENOXYLATE HYDROCHLORIDE
  39. MELOXICAM [Concomitant]
     Active Substance: MELOXICAM
     Indication: Arthralgia
     Dates: start: 20120912, end: 20141116
  40. AZITHROMYCIN [Concomitant]
     Active Substance: AZITHROMYCIN
     Indication: Infection
     Dates: start: 20100322, end: 20120622
  41. ASACOL [Concomitant]
     Active Substance: MESALAMINE
     Indication: Antiinflammatory therapy
     Dates: start: 20110414
  42. FUROSEMIDE [Concomitant]
     Active Substance: FUROSEMIDE
     Indication: Fluid retention
     Dates: start: 20111006, end: 2019
  43. CELEBREX [Concomitant]
     Active Substance: CELECOXIB
     Indication: Pain
     Dates: start: 2008, end: 20111213
  44. VOLTAREN [Concomitant]
     Active Substance: DICLOFENAC SODIUM
     Indication: Arthralgia
     Dates: start: 20111228
  45. AVELOX [Concomitant]
     Active Substance: MOXIFLOXACIN HYDROCHLORIDE
     Indication: Infection
     Dates: start: 20120312
  46. TYLENOL [Concomitant]
     Active Substance: ACETAMINOPHEN
     Indication: Headache
  47. IBUPROFEN [Concomitant]
     Active Substance: IBUPROFEN
     Indication: Pain
     Dates: start: 20071010
  48. FAMOTIDINE [Concomitant]
     Active Substance: FAMOTIDINE
     Dates: start: 2008
  49. SINGULAIR [Concomitant]
     Active Substance: MONTELUKAST SODIUM
     Dosage: IN THE EVENING
     Route: 048
  50. TRESIBA [Concomitant]
     Active Substance: INSULIN DEGLUDEC
     Dosage: INSULIN PEN INJECTED AS PER INSULIN PROTOCOL
     Route: 058
  51. XANAX [Concomitant]
     Active Substance: ALPRAZOLAM
     Route: 048
  52. ZOSTAVAX [Concomitant]
     Active Substance: VARICELLA-ZOSTER VIRUS STRAIN OKA/MERCK LIVE ANTIGEN
     Route: 048
  53. CYANOCOBALAMIN [Concomitant]
     Active Substance: CYANOCOBALAMIN
     Route: 048
  54. AUGMENTIN [Concomitant]
     Active Substance: AMOXICILLIN\CLAVULANATE POTASSIUM
  55. HUMULIN NOS [Concomitant]
     Active Substance: INSULIN HUMAN
  56. FENOFIBRIC ACID [Concomitant]
     Active Substance: FENOFIBRIC ACID
  57. TRILLPIX [Concomitant]
  58. RENAL VITAMIN [Concomitant]
     Route: 048
     Dates: start: 20200424
  59. ISOSORBIDE MONONITRATE [Concomitant]
     Active Substance: ISOSORBIDE MONONITRATE
  60. VITAMIN C [Concomitant]
     Active Substance: ASCORBIC ACID
  61. GLUCOPHAGE [Concomitant]
     Active Substance: METFORMIN HYDROCHLORIDE
  62. AMARYL [Concomitant]
     Active Substance: GLIMEPIRIDE
  63. ROBITUSSIN (GUAIFENESIN) [Concomitant]
     Active Substance: GUAIFENESIN
  64. EXCEDRIN [Concomitant]
     Active Substance: ACETAMINOPHEN\ASPIRIN\CAFFEINE
  65. GLUCAGON [Concomitant]
     Active Substance: GLUCAGON\GLUCAGON HYDROCHLORIDE\WATER
  66. CLARITIN [Concomitant]
     Active Substance: LORATADINE
  67. TRILIPIX [Concomitant]
     Active Substance: FENOFIBRIC ACID
  68. LEVEMIR [Concomitant]
     Active Substance: INSULIN DETEMIR
  69. DOCUSATE [Concomitant]
     Active Substance: DOCUSATE
  70. LEVOTHYROXINE [Concomitant]
     Active Substance: LEVOTHYROXINE
  71. MELATONIN [Concomitant]
     Active Substance: MELATONIN
  72. MORPHINE [Concomitant]
     Active Substance: MORPHINE
  73. ONDANSETRON [Concomitant]
     Active Substance: ONDANSETRON
  74. ATROPINE\DIPHENOXYLATE [Concomitant]
     Active Substance: ATROPINE\DIPHENOXYLATE
  75. FERROUS SULFATE [Concomitant]
     Active Substance: FERROUS SULFATE
  76. LACTULOSE [Concomitant]
     Active Substance: LACTULOSE
  77. LYRICA [Concomitant]
     Active Substance: PREGABALIN
  78. TRULICITY [Concomitant]
     Active Substance: DULAGLUTIDE
  79. PIOGLITAZONE [Concomitant]
     Active Substance: PIOGLITAZONE
  80. AZOR [Concomitant]
     Active Substance: AMLODIPINE BESYLATE\OLMESARTAN MEDOXOMIL
  81. ERYTHROMYCIN [Concomitant]
     Active Substance: ERYTHROMYCIN
  82. BYDUREON [Concomitant]
     Active Substance: EXENATIDE
  83. VICTOZA [Concomitant]
     Active Substance: LIRAGLUTIDE
  84. IMODIUM [Concomitant]
     Active Substance: LOPERAMIDE HYDROCHLORIDE
  85. NITROGLYCERIN [Concomitant]
     Active Substance: NITROGLYCERIN
  86. FISH OIL [Concomitant]
     Active Substance: FISH OIL
  87. VITAMINS [Concomitant]
     Active Substance: VITAMINS
  88. CALTRATE [Concomitant]
     Active Substance: CALCIUM CARBONATE
  89. LORAZEPAM [Concomitant]
     Active Substance: LORAZEPAM
  90. METAXALONE [Concomitant]
     Active Substance: METAXALONE
  91. CIPROFLOXACIN [Concomitant]
     Active Substance: CIPROFLOXACIN
  92. PHENAZOPYRIDINE [Concomitant]
     Active Substance: PHENAZOPYRIDINE
  93. CALCITRIOL [Concomitant]
     Active Substance: CALCITRIOL
  94. ESCIN/LEVOTHYROXINE [Concomitant]
  95. CARVEDILOL [Concomitant]
     Active Substance: CARVEDILOL
  96. ASCORBIC ACID\BIOTIN\CALCIUM PANTOTHENATE\CYANOCOBALAMIN\FOLIC ACID\NI [Concomitant]
     Active Substance: ASCORBIC ACID\BIOTIN\CALCIUM PANTOTHENATE\CYANOCOBALAMIN\FOLIC ACID\NIACINAMIDE\PYRIDOXINE HYDROCHLO

REACTIONS (8)
  - Acute kidney injury [Unknown]
  - Chronic kidney disease [Not Recovered/Not Resolved]
  - End stage renal disease [Not Recovered/Not Resolved]
  - Hyperparathyroidism secondary [Unknown]
  - Nephrogenic anaemia [Unknown]
  - Renal failure [Unknown]
  - Tubulointerstitial nephritis [Unknown]
  - Rebound acid hypersecretion [Unknown]

NARRATIVE: CASE EVENT DATE: 20120101
